FAERS Safety Report 11535663 (Version 2)
Quarter: 2015Q4

REPORT INFORMATION
  Report Type: Other
  Country: US (occurrence: US)
  Receive Date: 20150922
  Receipt Date: 20151014
  Transmission Date: 20160304
  Serious: Yes (Life-Threatening, Other)
  Sender: FDA-Public Use
  Company Number: US-SHIRE-US201510184

PATIENT
  Age: 44 Year
  Sex: Female
  Weight: 79.37 kg

DRUGS (6)
  1. FIRAZYR [Suspect]
     Active Substance: ICATIBANT ACETATE
     Dosage: 30 MG, ONE DOSE
     Route: 042
     Dates: start: 20150413, end: 20150413
  2. CINRYZE [Suspect]
     Active Substance: HUMAN C1-ESTERASE INHIBITOR
     Indication: PROPHYLAXIS
  3. FIRAZYR [Suspect]
     Active Substance: ICATIBANT ACETATE
     Indication: HEREDITARY ANGIOEDEMA
     Dosage: 30 MG, AS REQ^D
     Route: 058
     Dates: start: 2012
  4. CINRYZE [Suspect]
     Active Substance: HUMAN C1-ESTERASE INHIBITOR
     Indication: HEREDITARY ANGIOEDEMA
     Dosage: 500 UNITS, OTHER (TWICE A WEEK)
     Route: 042
     Dates: start: 20090601
  5. PROTONIX                           /00661201/ [Concomitant]
     Active Substance: OMEPRAZOLE
     Indication: PRODUCT USED FOR UNKNOWN INDICATION
     Dosage: UNK, UNKNOWN
     Route: 065
  6. BERINERT [Concomitant]
     Active Substance: HUMAN C1-ESTERASE INHIBITOR
     Indication: HEREDITARY ANGIOEDEMA
     Dosage: UNK, UNKNOWN
     Route: 065

REACTIONS (7)
  - Hereditary angioedema [Recovered/Resolved]
  - Laryngeal oedema [Recovered/Resolved]
  - Prescribed underdose [Unknown]
  - Incorrect route of drug administration [Recovered/Resolved]
  - Treatment failure [Unknown]
  - Renal impairment [Unknown]
  - Arthropathy [Unknown]

NARRATIVE: CASE EVENT DATE: 20090601
